FAERS Safety Report 14484692 (Version 19)
Quarter: 2020Q4

REPORT INFORMATION
  Report Type: Report from Study
  Country: PL (occurrence: PL)
  Receive Date: 20180205
  Receipt Date: 20201202
  Transmission Date: 20210113
  Serious: Yes (Hospitalization, Other)
  Sender: FDA-Public Use
  Company Number: PL-AUROBINDO-AUR-APL-2018-004870

PATIENT
  Age: 61 Year
  Sex: Male

DRUGS (9)
  1. DEXAVEN [Suspect]
     Active Substance: DEXAMETHASONE
     Indication: SPINAL CORD ISCHAEMIA
     Dosage: UNK
     Route: 042
  2. ALTEPLASE RECOMBINANT [Concomitant]
     Active Substance: ALTEPLASE
     Indication: PRODUCT USED FOR UNKNOWN INDICATION
     Dosage: 0.9 MG/KG, 90 MIN SINCE ONSET OF SYMPTOMS
     Route: 042
  3. ENOXAPARIN SODIUM. [Suspect]
     Active Substance: ENOXAPARIN SODIUM
     Indication: SPINAL CORD ISCHAEMIA
     Dosage: UNK
     Route: 065
  4. MANNITOL. [Suspect]
     Active Substance: MANNITOL
     Indication: SPINAL CORD ISCHAEMIA
     Dosage: UNK
     Route: 042
  5. ATORVASTATIN [Suspect]
     Active Substance: ATORVASTATIN
     Indication: SPINAL CORD ISCHAEMIA
     Dosage: UNK
     Route: 065
  6. ACETYLSALICYLIC ACID [Suspect]
     Active Substance: ASPIRIN
     Indication: SPINAL CORD ISCHAEMIA
     Dosage: UNK
     Route: 065
  7. RAMIPRIL. [Suspect]
     Active Substance: RAMIPRIL
     Indication: SPINAL CORD ISCHAEMIA
     Dosage: UNK
     Route: 065
  8. TORASEMIDE [Suspect]
     Active Substance: TORSEMIDE
     Indication: SPINAL CORD ISCHAEMIA
     Dosage: UNK
     Route: 065
  9. DEXAMETHASONE. [Concomitant]
     Active Substance: DEXAMETHASONE
     Indication: SPINAL CORD ISCHAEMIA
     Dosage: UNK
     Route: 042

REACTIONS (4)
  - Paralysis [Recovered/Resolved]
  - Paresis [Recovered/Resolved]
  - Condition aggravated [Recovered/Resolved]
  - Drug ineffective [Unknown]

NARRATIVE: CASE EVENT DATE: 20171025
